FAERS Safety Report 12614866 (Version 2)
Quarter: 2016Q3

REPORT INFORMATION
  Report Type: Spontaneous
  Country: US (occurrence: US)
  Receive Date: 20160802
  Receipt Date: 20160906
  Transmission Date: 20161109
  Serious: No
  Sender: FDA-Public Use
  Company Number: US-GLAXOSMITHKLINE-US2016GSK106332

PATIENT
  Sex: Female

DRUGS (2)
  1. BENLYSTA [Suspect]
     Active Substance: BELIMUMAB
     Indication: SYSTEMIC LUPUS ERYTHEMATOSUS
     Dosage: UNK
     Route: 042
     Dates: end: 2015
  2. BENLYSTA [Suspect]
     Active Substance: BELIMUMAB
     Dosage: UNK
     Route: 042
     Dates: end: 201603

REACTIONS (7)
  - Flushing [Unknown]
  - Large intestine polyp [Unknown]
  - Mental disorder [Unknown]
  - Feeling abnormal [Unknown]
  - Therapeutic procedure [Unknown]
  - Adverse drug reaction [Unknown]
  - Body temperature increased [Unknown]
